FAERS Safety Report 18959679 (Version 1)
Quarter: 2021Q1

REPORT INFORMATION
  Report Type: Spontaneous
  Country: US (occurrence: US)
  Receive Date: 20210303
  Receipt Date: 20210303
  Transmission Date: 20210420
  Serious: Yes (Hospitalization, Other)
  Sender: FDA-Public Use
  Company Number: US-AMGEN-USASP2021029620

PATIENT
  Age: 76 Year
  Sex: Female

DRUGS (1)
  1. REPATHA [Suspect]
     Active Substance: EVOLOCUMAB
     Indication: HYPERCHOLESTEROLAEMIA
     Dosage: 140 MILLIGRAM
     Route: 065

REACTIONS (12)
  - Memory impairment [Not Recovered/Not Resolved]
  - Delusion [Unknown]
  - Balance disorder [Unknown]
  - Joint swelling [Unknown]
  - Pain in extremity [Unknown]
  - Hallucination [Unknown]
  - Upper limb fracture [Unknown]
  - Urinary tract infection [Unknown]
  - Gait inability [Unknown]
  - Gait disturbance [Unknown]
  - Thrombosis [Unknown]
  - Back disorder [Unknown]

NARRATIVE: CASE EVENT DATE: 20200510
